FAERS Safety Report 18441475 (Version 1)
Quarter: 2020Q4

REPORT INFORMATION
  Report Type: Spontaneous
  Country: SK (occurrence: SK)
  Receive Date: 20201029
  Receipt Date: 20201029
  Transmission Date: 20210114
  Serious: Yes (Congenital Anomaly, Other)
  Sender: FDA-Public Use
  Company Number: SK-SA-2020SA040148

PATIENT

DRUGS (1)
  1. AUBAGIO [Suspect]
     Active Substance: TERIFLUNOMIDE
     Indication: MULTIPLE SCLEROSIS
     Dosage: UNK
     Dates: start: 20170927, end: 20200205

REACTIONS (2)
  - Congenital pyelocaliectasis [Unknown]
  - Foetal macrosomia [Unknown]

NARRATIVE: CASE EVENT DATE: 202010
